FAERS Safety Report 6607553-3 (Version None)
Quarter: 2010Q1

REPORT INFORMATION
  Report Type: 
  Country: None (occurrence: None)
  Receive Date: 20100301
  Receipt Date: 20100218
  Transmission Date: 20100710
  Serious: Yes (Other)
  Sender: FDA-Public Use
  Company Number: PHHY2009BR26167

PATIENT
  Sex: Male

DRUGS (4)
  1. DIOVAN [Suspect]
     Dosage: 320/5 MG
     Route: 048
  2. HALDOL [Concomitant]
     Dosage: 5 DROPS BID
  3. RIVOTRIL [Concomitant]
     Dosage: 2 MG, BID
  4. AMITRIPTYLINE HYDROCHLORIDE [Concomitant]
     Dosage: 25 MG, BID

REACTIONS (3)
  - ABNORMAL BEHAVIOUR [None]
  - AGGRESSION [None]
  - BLOOD PRESSURE INADEQUATELY CONTROLLED [None]
